FAERS Safety Report 4887567-4 (Version None)
Quarter: 2006Q1

REPORT INFORMATION
  Report Type: 
  Country: None (occurrence: None)
  Receive Date: 20060118
  Receipt Date: 20060103
  Transmission Date: 20060701
  Serious: Yes (Hospitalization)
  Sender: FDA-Public Use
  Company Number: DEU-2005-0001618

PATIENT
  Age: 75 Year
  Sex: Female

DRUGS (4)
  1. PALLADONE [Suspect]
     Indication: PAIN
     Dosage: SEE IMAGE
     Route: 048
     Dates: start: 20041117
  2. KATADOLON(FLUPIRTINE MALEATE) [Suspect]
     Dosage: 1 UNIT, TID, ORAL
     Route: 048
     Dates: start: 20031001
  3. DIPYRONE TAB [Concomitant]
  4. NORTRIPTYLINE HCL [Concomitant]

REACTIONS (4)
  - MENINGIOMA [None]
  - POLLAKIURIA [None]
  - RESTLESSNESS [None]
  - SLEEP WALKING [None]
